FAERS Safety Report 9895085 (Version 1)
Quarter: 2014Q1

REPORT INFORMATION
  Report Type: Spontaneous
  Country: US (occurrence: US)
  Receive Date: 20140213
  Receipt Date: 20140213
  Transmission Date: 20141002
  Serious: No
  Sender: FDA-Public Use
  Company Number: US-BRISTOL-MYERS SQUIBB COMPANY-18595116

PATIENT
  Age: 45 Year
  Sex: Female
  Weight: 97.5 kg

DRUGS (4)
  1. ABATACEPT SUBQ INJECTION 125MG/ML [Suspect]
     Indication: RHEUMATOID ARTHRITIS
     Route: 058
  2. VITAMIN D [Concomitant]
  3. VENTOLIN [Concomitant]
     Dosage: VENTOLIN HFA AER
  4. ADVAIR DISKUS [Concomitant]

REACTIONS (1)
  - Drug ineffective [Unknown]
